FAERS Safety Report 19023363 (Version 1)
Quarter: 2021Q1

REPORT INFORMATION
  Report Type: Spontaneous
  Country: CL (occurrence: CL)
  Receive Date: 20210318
  Receipt Date: 20210318
  Transmission Date: 20210420
  Serious: Yes (Hospitalization)
  Sender: FDA-Public Use
  Company Number: CL-TEVA-2021-CL-1890653

PATIENT
  Age: 42 Year
  Sex: Male

DRUGS (8)
  1. ROSUVASTATIN. [Suspect]
     Active Substance: ROSUVASTATIN
     Indication: HYPERTRIGLYCERIDAEMIA
     Dosage: 10 MILLIGRAM DAILY;
     Route: 065
  2. INSULIN GLARGINE [Concomitant]
     Active Substance: INSULIN GLARGINE
     Indication: PRODUCT USED FOR UNKNOWN INDICATION
     Route: 065
  3. PHENOFIBRATE [Concomitant]
     Active Substance: FENOFIBRATE
     Indication: HYPERTRIGLYCERIDAEMIA
     Dosage: 200 MILLIGRAM DAILY;
     Route: 065
  4. OMEGA?3 ACIDS [Concomitant]
     Active Substance: OMEGA-3 FATTY ACIDS
     Indication: HYPERTRIGLYCERIDAEMIA
     Dosage: 6 GRAM DAILY;
     Route: 065
  5. CIPROFIBRATE [Concomitant]
     Active Substance: CIPROFIBRATE
     Indication: HYPERTRIGLYCERIDAEMIA
     Dosage: 200 MILLIGRAM DAILY;
     Route: 065
  6. ORLISTAT. [Concomitant]
     Active Substance: ORLISTAT
     Indication: HYPERTRIGLYCERIDAEMIA
     Dosage: 3 TIMES DAILY
     Route: 065
  7. HEPARIN [Concomitant]
     Active Substance: HEPARIN SODIUM
     Indication: PRODUCT USED FOR UNKNOWN INDICATION
     Route: 050
  8. INSULIN [Concomitant]
     Active Substance: INSULIN NOS
     Indication: PRODUCT USED FOR UNKNOWN INDICATION
     Route: 050

REACTIONS (3)
  - Blood triglycerides increased [Recovering/Resolving]
  - Abdominal pain [Recovering/Resolving]
  - Rebound effect [Recovering/Resolving]
